FAERS Safety Report 4891446-6 (Version None)
Quarter: 2005Q4

REPORT INFORMATION
  Report Type: 
  Country: None (occurrence: None)
  Receive Date: 20051220
  Receipt Date: 20050314
  Transmission Date: 20060501
  Serious: Yes (Life-Threatening)
  Sender: FDA-Public Use
  Company Number: 200510105BWH

PATIENT
  Age: 3 Month
  Sex: Male

DRUGS (1)
  1. TRASYLOL [Suspect]
     Indication: STERNOTOMY
     Dosage: 1 ML, ONCE, INTRAVENOUS BOLUS
     Route: 040
     Dates: start: 20041101

REACTIONS (5)
  - ANAPHYLACTIC REACTION [None]
  - BRONCHOSPASM [None]
  - HEART RATE INCREASED [None]
  - HYPOTENSION [None]
  - PCO2 ABNORMAL [None]
